FAERS Safety Report 23334624 (Version 1)
Quarter: 2023Q4

REPORT INFORMATION
  Report Type: Spontaneous
  Country: US (occurrence: US)
  Receive Date: 20231224
  Receipt Date: 20231224
  Transmission Date: 20240109
  Serious: Yes (Hospitalization, Other)
  Sender: FDA-Public Use
  Company Number: US-JNJFOC-20231253407

PATIENT
  Age: 55 Year
  Sex: Female
  Weight: 77.1 kg

DRUGS (36)
  1. UPTRAVI [Suspect]
     Active Substance: SELEXIPAG
     Indication: Product used for unknown indication
     Route: 048
     Dates: end: 202311
  2. REMODULIN [Suspect]
     Active Substance: TREPROSTINIL
     Indication: Pulmonary arterial hypertension
     Dosage: 3ML PER CASSETTE; PUMP RATE 30MCL PER HOUR
     Route: 058
     Dates: start: 202310
  3. REMODULIN [Suspect]
     Active Substance: TREPROSTINIL
     Dosage: 2 ML PER CASSETTE, RATE OF 16 MCL PER HOUR
     Route: 058
     Dates: start: 202310, end: 202311
  4. REMODULIN [Suspect]
     Active Substance: TREPROSTINIL
     Route: 058
     Dates: start: 20231006, end: 202310
  5. REMODULIN [Suspect]
     Active Substance: TREPROSTINIL
     Dosage: PHARMACY FILLED  WITH 2.4 ML/CASSETTE, RATE OF 20MCL/HOUR
     Route: 058
     Dates: start: 20231112, end: 202311
  6. AMITRIPTYLINE HYDROCHLORIDE [Concomitant]
     Active Substance: AMITRIPTYLINE HYDROCHLORIDE
  7. MAGNESIUM OXIDE [Concomitant]
     Active Substance: MAGNESIUM OXIDE
  8. ONDANSETRON HYDROCHLORIDE [Concomitant]
     Active Substance: ONDANSETRON HYDROCHLORIDE
  9. POLYETHYLENE GLYCOLS [Concomitant]
     Active Substance: POLYETHYLENE GLYCOLS
  10. ACETAMINOPHEN [Concomitant]
     Active Substance: ACETAMINOPHEN
  11. TADALAFIL [Concomitant]
     Active Substance: TADALAFIL
  12. LECITHIN [GLYCINE MAX EXTRACT] [Concomitant]
  13. SODIUM CHLORIDE [Concomitant]
     Active Substance: SODIUM CHLORIDE
  14. FUROSEMIDE [Concomitant]
     Active Substance: FUROSEMIDE
  15. SPIRONOLACTONE [Concomitant]
     Active Substance: SPIRONOLACTONE
  16. LACTULOSE [Concomitant]
     Active Substance: LACTULOSE
  17. KETAMINE HYDROCHLORIDE [Concomitant]
     Active Substance: KETAMINE HYDROCHLORIDE
  18. OPZELURA [Concomitant]
     Active Substance: RUXOLITINIB PHOSPHATE
  19. TRAMADOL HYDROCHLORIDE [Concomitant]
     Active Substance: TRAMADOL HYDROCHLORIDE
  20. TRIAMCINOLONE ACETONIDE [Concomitant]
     Active Substance: TRIAMCINOLONE ACETONIDE
  21. LIDOCAINE HYDROCHLORIDE [Concomitant]
     Active Substance: DEXTROSE MONOHYDRATE\EPINEPHRINE\EPINEPHRINE BITARTRATE\LIDOCAINE\LIDOCAINE HYDROCHLORIDE\LIDOCAINE
  22. BUMETANIDE [Concomitant]
     Active Substance: BUMETANIDE
  23. LORATADINE [Concomitant]
     Active Substance: LORATADINE
  24. TACROLIMUS [Concomitant]
     Active Substance: TACROLIMUS
  25. GABAPENTIN [Concomitant]
     Active Substance: GABAPENTIN
  26. SIMETHICONE (DIMETHICONE) [Concomitant]
     Active Substance: DIMETHICONE
  27. POLOXAMER [Concomitant]
     Active Substance: POLOXAMER
  28. HYDROXYZINE HYDROCHLORIDE [Concomitant]
     Active Substance: HYDROXYZINE HYDROCHLORIDE
  29. CLONIDINE [Concomitant]
     Active Substance: CLONIDINE
  30. URSODIOL [Concomitant]
     Active Substance: URSODIOL
  31. POTASSIUM CHLORIDE [Concomitant]
     Active Substance: POTASSIUM CHLORIDE
  32. KETOPROFEN [Concomitant]
     Active Substance: KETOPROFEN
  33. CHOLECALCIFEROL [Concomitant]
     Active Substance: CHOLECALCIFEROL
  34. PANTOPRAZOLE SODIUM [Concomitant]
     Active Substance: PANTOPRAZOLE SODIUM
  35. XIFAXAN [Concomitant]
     Active Substance: RIFAXIMIN
  36. AMBRISENTAN [Concomitant]
     Active Substance: AMBRISENTAN
     Dates: end: 2023

REACTIONS (16)
  - Hallucination [Recovered/Resolved]
  - Infusion site pain [Unknown]
  - Hypophagia [Unknown]
  - Abdominal pain upper [Unknown]
  - Dizziness [Unknown]
  - Hypotension [Unknown]
  - Liver transplant [Unknown]
  - Tremor [Unknown]
  - Fatigue [Recovered/Resolved]
  - Nausea [Recovered/Resolved]
  - Headache [Recovered/Resolved]
  - Hypersomnia [Unknown]
  - Peripheral swelling [Unknown]
  - Confusional state [Recovered/Resolved]
  - Amnesia [Unknown]
  - Balance disorder [Unknown]

NARRATIVE: CASE EVENT DATE: 20230101
